FAERS Safety Report 10159089 (Version 3)
Quarter: 2014Q2

REPORT INFORMATION
  Report Type: Report from Study
  Country: ZA (occurrence: ZA)
  Receive Date: 20140508
  Receipt Date: 20140613
  Transmission Date: 20141212
  Serious: Yes (Hospitalization, Other)
  Sender: FDA-Public Use
  Company Number: ZA-BIOGENIDEC-2014BI021996

PATIENT
  Age: 45 Year
  Sex: Male
  Weight: 74 kg

DRUGS (8)
  1. RFIXFC [Suspect]
     Indication: FACTOR IX DEFICIENCY
     Route: 042
     Dates: start: 20110509
  2. RFIXFC [Suspect]
     Indication: FACTOR IX DEFICIENCY
     Route: 042
     Dates: start: 20121005
  3. TRAMADOL [Concomitant]
     Indication: HEADACHE
     Route: 048
     Dates: start: 20130318
  4. TRAMADOL [Concomitant]
     Indication: BACK PAIN
     Route: 048
     Dates: start: 20130318
  5. PARACETAMOL [Concomitant]
     Indication: HEADACHE
     Route: 048
     Dates: start: 20130318
  6. PARACETAMOL [Concomitant]
     Indication: BACK PAIN
     Route: 048
     Dates: start: 20130318
  7. RETIN-A [Concomitant]
     Indication: PSORIASIS
     Route: 061
     Dates: start: 20130314
  8. MAGNESIUM CHLORIDE [Concomitant]
     Indication: MUSCLE SPASMS
     Route: 048
     Dates: start: 20121119

REACTIONS (1)
  - Intervertebral disc protrusion [Recovered/Resolved with Sequelae]
